FAERS Safety Report 13422530 (Version 1)
Quarter: 2017Q2

REPORT INFORMATION
  Report Type: Spontaneous
  Country: US (occurrence: US)
  Receive Date: 20170410
  Receipt Date: 20170410
  Transmission Date: 20170830
  Serious: No
  Sender: FDA-Public Use
  Company Number: US-GLAXOSMITHKLINE-US2017GSK046387

PATIENT
  Age: 80 Year
  Sex: Male

DRUGS (1)
  1. INCRUSE ELLIPTA [Suspect]
     Active Substance: UMECLIDINIUM BROMIDE
     Indication: PRODUCT USED FOR UNKNOWN INDICATION
     Dosage: 1 PUFF(S), QD
     Dates: start: 201609, end: 20170331

REACTIONS (10)
  - Arthralgia [Unknown]
  - Abdominal pain upper [Unknown]
  - Diplopia [Unknown]
  - Heart rate irregular [Unknown]
  - Dyspnoea [Unknown]
  - Rhinorrhoea [Unknown]
  - Micturition disorder [Unknown]
  - Pollakiuria [Unknown]
  - Pain [Unknown]
  - Myalgia [Unknown]

NARRATIVE: CASE EVENT DATE: 201703
